FAERS Safety Report 6264178-X (Version None)
Quarter: 2009Q3

REPORT INFORMATION
  Report Type: 
  Country: None (occurrence: None)
  Receive Date: 20090710
  Receipt Date: 20090702
  Transmission Date: 20100115
  Serious: Yes (Other)
  Sender: FDA-Public Use
  Company Number: ES-PFIZER INC-2009222222

PATIENT
  Age: 77 Year

DRUGS (9)
  1. EPLERENONE [Suspect]
     Indication: CARDIAC FAILURE
     Dosage: 25 MG, 1X/DAY
     Route: 048
     Dates: start: 20081212, end: 20090305
  2. FUROSEMIDE [Interacting]
     Indication: CARDIAC FAILURE
     Dosage: 40 MG, 4X/DAY
     Route: 048
     Dates: start: 20081212
  3. ADIRO [Concomitant]
     Indication: CARDIOMYOPATHY ACUTE
     Dosage: 100 MG, 1X/DAY
     Route: 048
  4. COROPRES [Concomitant]
     Indication: CARDIOMYOPATHY ACUTE
     Dosage: 6.25 MG, 2X/DAY
     Route: 048
  5. DEPAMIDE [Concomitant]
     Indication: CAUDA EQUINA SYNDROME
     Dosage: 300 MG, 3X/DAY
     Route: 048
  6. ORFIDAL [Concomitant]
     Indication: ANXIETY
     Dosage: 1 MG, 1X/DAY
     Route: 048
  7. LOFTON [Concomitant]
     Indication: VENOUS INSUFFICIENCY
     Dosage: 150 MG, 3X/DAY
     Route: 048
  8. PLANTABEN [Concomitant]
     Indication: CONSTIPATION
     Dosage: 3.5 G, 3X/DAY
     Route: 048
  9. AMIODARONE HCL [Concomitant]
     Indication: CARDIOMYOPATHY ACUTE
     Dosage: 200 MG, UNK
     Route: 048

REACTIONS (1)
  - RENAL FAILURE [None]
